FAERS Safety Report 22610352 (Version 1)
Quarter: 2023Q2

REPORT INFORMATION
  Report Type: Spontaneous
  Country: GB (occurrence: GB)
  Receive Date: 20230616
  Receipt Date: 20230616
  Transmission Date: 20230721
  Serious: Yes (Other)
  Sender: FDA-Public Use
  Company Number: None

PATIENT
  Age: 21 Year
  Sex: Female

DRUGS (7)
  1. ALBUTEROL [Concomitant]
     Active Substance: ALBUTEROL
     Indication: Asthma
     Dates: start: 20160203
  2. DEXAMETHASONE [Concomitant]
     Active Substance: DEXAMETHASONE
     Indication: Product used for unknown indication
  3. DEVICE [Suspect]
     Active Substance: DEVICE
     Indication: Dermatitis atopic
  4. Olapatadine [Concomitant]
     Indication: Product used for unknown indication
  5. ADBRY [Suspect]
     Active Substance: TRALOKINUMAB-LDRM
     Indication: Dermatitis atopic
     Dosage: 300 MG
     Dates: start: 20230221, end: 20230405
  6. ADBRY [Suspect]
     Active Substance: TRALOKINUMAB-LDRM
     Indication: Dermatitis atopic
     Dosage: 300 MG
     Dates: start: 20230221, end: 20230405
  7. ADBRY [Suspect]
     Active Substance: TRALOKINUMAB-LDRM
     Indication: Dermatitis atopic
     Dosage: 300 MG
     Dates: start: 20230221, end: 20230405

REACTIONS (10)
  - Punctate keratitis [Unknown]
  - Corneal deposits [Recovered/Resolved]
  - Blepharitis [Unknown]
  - Noninfective conjunctivitis [Unknown]
  - Vision blurred [Recovered/Resolved]
  - Drug ineffective [Unknown]
  - Withdrawal syndrome [Unknown]
  - Corneal deposits [Recovered/Resolved]
  - Vision blurred [Recovered/Resolved]
  - Eye infection [Unknown]

NARRATIVE: CASE EVENT DATE: 20230227
